FAERS Safety Report 11147359 (Version 1)
Quarter: 2015Q2

REPORT INFORMATION
  Report Type: Spontaneous
  Country: US (occurrence: US)
  Receive Date: 20150528
  Receipt Date: 20150528
  Transmission Date: 20150821
  Serious: No
  Sender: FDA-Public Use
  Company Number: US-009507513-1505USA014371

PATIENT
  Sex: Male

DRUGS (1)
  1. BELSOMRA [Suspect]
     Active Substance: SUVOREXANT
     Indication: INSOMNIA
     Dosage: 10MG/ONCE AT NIGHT
     Route: 048

REACTIONS (3)
  - Somnolence [Unknown]
  - Medication error [Unknown]
  - Circumstance or information capable of leading to medication error [Unknown]
